FAERS Safety Report 5758019-4 (Version None)
Quarter: 2008Q2

REPORT INFORMATION
  Report Type: 
  Country: None (occurrence: None)
  Receive Date: 20080602
  Receipt Date: 20080602
  Transmission Date: 20081010
  Serious: Yes (Hospitalization)
  Sender: FDA-Public Use
  Company Number: None

PATIENT
  Age: 79 Year
  Sex: Female
  Weight: 66.7 kg

DRUGS (1)
  1. SEPTRA [Suspect]
     Indication: LOCALISED INFECTION
     Dosage: 1 TABLET ONE TIME PO
     Route: 048
     Dates: start: 20080529, end: 20080529

REACTIONS (1)
  - ANAPHYLACTIC REACTION [None]
